FAERS Safety Report 7788161-8 (Version None)
Quarter: 2011Q3

REPORT INFORMATION
  Report Type: 
  Country: None (occurrence: None)
  Receive Date: 20110927
  Receipt Date: 20110913
  Transmission Date: 20111222
  Serious: Yes (Death)
  Sender: FDA-Public Use
  Company Number: 2011MA013456

PATIENT
  Age: 74 Year
  Sex: Male

DRUGS (1)
  1. VINORELBINE [Suspect]
     Indication: SQUAMOUS CELL CARCINOMA

REACTIONS (2)
  - CONDITION AGGRAVATED [None]
  - INTERSTITIAL LUNG DISEASE [None]
